FAERS Safety Report 7971056-4 (Version None)
Quarter: 2011Q4

REPORT INFORMATION
  Report Type: 
  Country: None (occurrence: None)
  Receive Date: 20111212
  Receipt Date: 20111212
  Transmission Date: 20120403
  Serious: No
  Sender: FDA-Public Use
  Company Number: None

PATIENT
  Age: 75 Year
  Sex: Female
  Weight: 58.059 kg

DRUGS (1)
  1. CALCITONIN SALMON [Suspect]
     Route: 045
     Dates: start: 20111121, end: 20111125

REACTIONS (2)
  - EPISTAXIS [None]
  - ARTHRALGIA [None]
